FAERS Safety Report 8289305-4 (Version None)
Quarter: 2012Q2

REPORT INFORMATION
  Report Type: 
  Country: None (occurrence: None)
  Receive Date: 20120417
  Receipt Date: 20120416
  Transmission Date: 20120825
  Serious: Yes (Death)
  Sender: FDA-Public Use
  Company Number: PHHO2012IE001267

PATIENT
  Sex: Male
  Weight: 107.4 kg

DRUGS (5)
  1. SPIRONOLACTONE [Concomitant]
     Indication: CARDIAC FAILURE CHRONIC
     Dosage: 25 MG, UNK
     Dates: start: 20091027, end: 20120111
  2. BISOPROLOL FUMARATE [Concomitant]
     Indication: CARDIAC FAILURE CHRONIC
     Dosage: 10 MG, UNK
     Dates: start: 20091024, end: 20120111
  3. ALISKIREN [Suspect]
     Indication: CARDIAC FAILURE
     Dosage: UNK
     Route: 048
     Dates: start: 20100120, end: 20120111
  4. NSA [Concomitant]
     Indication: CARDIAC DISORDER
     Dosage: 75 MG, UNK
     Dates: start: 20090101, end: 20120111
  5. FUROSEMIDE [Concomitant]
     Indication: CARDIAC FAILURE CHRONIC
     Dosage: 40 MG, UNK
     Dates: start: 20091023, end: 20120111

REACTIONS (2)
  - MYOCARDIAL INFARCTION [None]
  - DISEASE PROGRESSION [None]
